FAERS Safety Report 24738968 (Version 1)
Quarter: 2024Q4

REPORT INFORMATION
  Report Type: Spontaneous
  Country: ES (occurrence: ES)
  Receive Date: 20241216
  Receipt Date: 20241216
  Transmission Date: 20250114
  Serious: Yes (Death, Other)
  Sender: AMGEN
  Company Number: ES-AMGEN-ESPSP2024241762

PATIENT
  Age: 41 Year
  Sex: Male

DRUGS (7)
  1. BEVACIZUMAB [Suspect]
     Active Substance: BEVACIZUMAB
     Indication: Glioblastoma
     Dosage: 7.5 MILLIGRAM/KILOGRAM, Q2WK (EVERY 15 DAYS)
     Route: 065
  2. BEVACIZUMAB [Suspect]
     Active Substance: BEVACIZUMAB
     Dosage: 7.5 MILLIGRAM/KILOGRAM, Q3WK (EVERY 21 DAYS)
     Route: 065
  3. REGORAFENIB [Concomitant]
     Active Substance: REGORAFENIB
     Indication: Glioblastoma
     Dosage: 160 MILLIGRAM, QD FOR 21 DAYS
     Route: 065
  4. REGORAFENIB [Concomitant]
     Active Substance: REGORAFENIB
     Dosage: 120 MILLIGRAM, QD
     Route: 065
  5. REGORAFENIB [Concomitant]
     Active Substance: REGORAFENIB
     Dosage: 120 MILLIGRAM, QD
     Route: 065
     Dates: start: 202305
  6. REGORAFENIB [Concomitant]
     Active Substance: REGORAFENIB
     Dosage: 80 MILLIGRAM, QD
     Route: 065
  7. REGORAFENIB [Concomitant]
     Active Substance: REGORAFENIB
     Dosage: 40 MILLIGRAM, QD
     Route: 065

REACTIONS (3)
  - Sudden death [Fatal]
  - Decorticate posture [Unknown]
  - Off label use [Unknown]
